FAERS Safety Report 9105388 (Version 1)
Quarter: 2013Q1

REPORT INFORMATION
  Report Type: Spontaneous
  Country: IT (occurrence: IT)
  Receive Date: 20130220
  Receipt Date: 20130220
  Transmission Date: 20140127
  Serious: Yes (Hospitalization)
  Sender: FDA-Public Use
  Company Number: IT-MYLANLABS-2013S1002949

PATIENT
  Age: 47 Year
  Sex: Male

DRUGS (6)
  1. LEVOFLOXACIN [Suspect]
     Indication: INFLUENZA
     Route: 048
     Dates: start: 20130202, end: 20130202
  2. SUTENT [Concomitant]
     Indication: RENAL CELL CARCINOMA
     Dates: start: 20120701
  3. DEPALGOS [Concomitant]
     Indication: PAIN
  4. PLASIL [Concomitant]
     Indication: PRODUCT USED FOR UNKNOWN INDICATION
  5. BETAMETHASONE [Concomitant]
     Indication: PRODUCT USED FOR UNKNOWN INDICATION
  6. LANSOPRAZOLE [Concomitant]
     Indication: PRODUCT USED FOR UNKNOWN INDICATION

REACTIONS (3)
  - Dyspnoea [Recovering/Resolving]
  - Vomiting [Recovering/Resolving]
  - Generalised erythema [Recovering/Resolving]
